FAERS Safety Report 6011313-4 (Version None)
Quarter: 2008Q4

REPORT INFORMATION
  Report Type: 
  Country: None (occurrence: None)
  Receive Date: 20081218
  Receipt Date: 20081210
  Transmission Date: 20090506
  Serious: Yes (Hospitalization)
  Sender: FDA-Public Use
  Company Number: US-BIOGENIDEC-2008BI027259

PATIENT
  Age: 54 Year
  Sex: Female
  Weight: 49 kg

DRUGS (1)
  1. AVONEX [Suspect]
     Indication: MULTIPLE SCLEROSIS
     Route: 030
     Dates: start: 20081010

REACTIONS (13)
  - ABASIA [None]
  - CONFUSIONAL STATE [None]
  - FATIGUE [None]
  - FLUSHING [None]
  - HEART RATE INCREASED [None]
  - HEMICEPHALALGIA [None]
  - HYPERHIDROSIS [None]
  - INCOHERENT [None]
  - INFLUENZA LIKE ILLNESS [None]
  - LOSS OF CONTROL OF LEGS [None]
  - MOBILITY DECREASED [None]
  - MUSCLE SPASTICITY [None]
  - TREMOR [None]
